FAERS Safety Report 15936394 (Version 2)
Quarter: 2019Q2

REPORT INFORMATION
  Report Type: Spontaneous
  Country: US (occurrence: US)
  Receive Date: 20190208
  Receipt Date: 20190516
  Transmission Date: 20190711
  Serious: Yes (Hospitalization, Other)
  Sender: FDA-Public Use
  Company Number: US-SA-2019SA030338

PATIENT
  Age: 60 Year
  Sex: Female

DRUGS (16)
  1. CIALIS [Concomitant]
     Active Substance: TADALAFIL
  2. MAGNESIUM [Concomitant]
     Active Substance: MAGNESIUM
  3. AUBAGIO [Suspect]
     Active Substance: TERIFLUNOMIDE
     Indication: MULTIPLE SCLEROSIS
     Dosage: 14 MG, QD
     Route: 048
     Dates: start: 20160525
  4. TRAZODONE [Concomitant]
     Active Substance: TRAZODONE HYDROCHLORIDE
  5. VIAGRA [Concomitant]
     Active Substance: SILDENAFIL CITRATE
  6. TIZANIDINE. [Concomitant]
     Active Substance: TIZANIDINE
  7. PROZAC [Concomitant]
     Active Substance: FLUOXETINE HYDROCHLORIDE
  8. ASPIRIN [ACETYLSALICYLIC ACID] [Concomitant]
     Active Substance: ASPIRIN
  9. LISINOPRIL. [Concomitant]
     Active Substance: LISINOPRIL
  10. METOPROLOL SUCCINATE. [Concomitant]
     Active Substance: METOPROLOL SUCCINATE
  11. BACLOFEN. [Concomitant]
     Active Substance: BACLOFEN
  12. FOLIC ACID. [Concomitant]
     Active Substance: FOLIC ACID
  13. NEURONTIN [Concomitant]
     Active Substance: GABAPENTIN
  14. BACTRIM [Concomitant]
     Active Substance: SULFAMETHOXAZOLE\TRIMETHOPRIM
  15. COLACE [Concomitant]
     Active Substance: DOCUSATE SODIUM
  16. RIBOFLAVIN [Concomitant]
     Active Substance: RIBOFLAVIN

REACTIONS (3)
  - Fall [Unknown]
  - Fracture [Unknown]
  - Nephrolithiasis [Unknown]

NARRATIVE: CASE EVENT DATE: 20190129
